FAERS Safety Report 9759635 (Version 1)
Quarter: 2013Q4

REPORT INFORMATION
  Report Type: Spontaneous
  Country: US (occurrence: US)
  Receive Date: 20131216
  Receipt Date: 20131216
  Transmission Date: 20140711
  Serious: No
  Sender: FDA-Public Use
  Company Number: US-GILEAD-2010-0028260

PATIENT
  Sex: Female
  Weight: 113.4 kg

DRUGS (20)
  1. LETAIRIS [Suspect]
     Indication: PULMONARY ARTERIAL HYPERTENSION
     Route: 048
     Dates: start: 20100115
  2. PRAVACHOL [Concomitant]
  3. LEVOTHYROXINE [Concomitant]
  4. XANAX [Concomitant]
  5. LASIX [Concomitant]
  6. NEURONTIN [Concomitant]
  7. DIOVAN HCT [Concomitant]
  8. GLUCOPHAGE [Concomitant]
  9. ALLEGRA [Concomitant]
  10. CARDIZEM CD [Concomitant]
  11. PREVACID [Concomitant]
  12. POTASSIUM CHLORIDE [Concomitant]
  13. PROBIOTIC FORMULA [Concomitant]
  14. DAILY MULTIVITAMIN [Concomitant]
  15. VITAMIN C [Concomitant]
  16. VITAMIN D [Concomitant]
  17. ACAI BERRY [Concomitant]
  18. PLAVIX [Concomitant]
  19. L-GLUTATHIONE [Concomitant]
  20. FISH OIL [Concomitant]

REACTIONS (2)
  - Haematocrit decreased [Unknown]
  - Haemoglobin decreased [Unknown]
